FAERS Safety Report 7037840-9 (Version None)
Quarter: 2010Q4

REPORT INFORMATION
  Report Type: 
  Country: None (occurrence: None)
  Receive Date: 20101011
  Receipt Date: 20101006
  Transmission Date: 20110411
  Serious: Yes (Life-Threatening, Other)
  Sender: FDA-Public Use
  Company Number: JP-ELI_LILLY_AND_COMPANY-JP201009006432

PATIENT
  Sex: Female
  Weight: 36.6 kg

DRUGS (11)
  1. GEMZAR [Suspect]
     Indication: PANCREATIC CARCINOMA STAGE IV
     Dosage: 1400 MG, OTHER
     Route: 042
     Dates: start: 20070521, end: 20100829
  2. FAMOTIDINE [Concomitant]
     Indication: GASTRITIS
     Dosage: 40 MG, DAILY (1/D)
     Route: 048
  3. URSO 250 [Concomitant]
     Dosage: 600 MG, DAILY (1/D)
     Route: 048
  4. CAMOSTAT MESILATE [Concomitant]
     Indication: PANCREATITIS CHRONIC
     Dosage: 600 MG, DAILY (1/D)
     Route: 048
  5. ACTOS [Concomitant]
     Indication: TYPE 2 DIABETES MELLITUS
     Dosage: 30 MG, DAILY (1/D)
     Route: 048
  6. FUROSEMID [Concomitant]
     Indication: OEDEMA
     Dosage: 20 MG, DAILY (1/D)
     Route: 048
  7. ASPARA K [Concomitant]
     Indication: HYPERKALAEMIA
     Dosage: 900 MG, DAILY (1/D)
     Route: 048
  8. BIOFERMIN [Concomitant]
     Indication: DIARRHOEA
     Dosage: 3 G, DAILY (1/D)
     Route: 048
  9. LOXOPROFEN [Concomitant]
     Indication: PAIN MANAGEMENT
     Dosage: 180 MG, DAILY (1/D)
     Route: 048
  10. FERROMIA [Concomitant]
     Indication: IRON DEFICIENCY ANAEMIA
     Dosage: 200 MG, DAILY (1/D)
     Route: 048
  11. POSTERISAN [Concomitant]
     Indication: HAEMORRHOIDS
     Dosage: UNK, UNK
     Route: 062

REACTIONS (2)
  - DUODENAL ULCER [None]
  - JEJUNAL PERFORATION [None]
